FAERS Safety Report 4667031-8 (Version None)
Quarter: 2005Q2

REPORT INFORMATION
  Report Type: 
  Country: None (occurrence: None)
  Receive Date: 20050520
  Receipt Date: 20040329
  Transmission Date: 20051028
  Serious: Yes (Disabling, Other)
  Sender: FDA-Public Use
  Company Number: PHEH2004US03638

PATIENT
  Age: 72 Year
  Sex: Male

DRUGS (7)
  1. AREDIA [Suspect]
     Indication: PROSTATE CANCER
     Dosage: 90 MG, QMO
     Route: 042
     Dates: start: 19990101, end: 20030101
  2. PREDNISONE TAB [Concomitant]
     Indication: PROSTATE CANCER
     Dosage: 10 MG, QD
     Dates: start: 20010101, end: 20030101
  3. DURAGESIC-100 [Concomitant]
     Indication: PAIN
     Dosage: 75 MG, UNK
  4. TAXOL [Concomitant]
     Indication: PROSTATE CANCER
     Dates: start: 20010101, end: 20030101
  5. ZOLOFT [Concomitant]
     Indication: DEPRESSION
     Dosage: 100 MG, QD
  6. TAXOTERE [Concomitant]
     Indication: PROSTATE CANCER
     Dates: start: 20010101, end: 20030101
  7. METHOTREXATE [Concomitant]
     Indication: PROSTATE CANCER
     Dosage: UNK, UNK
     Dates: start: 20010101, end: 20030101

REACTIONS (5)
  - ASEPTIC NECROSIS BONE [None]
  - BONE DISORDER [None]
  - BONE PAIN [None]
  - INFECTION [None]
  - SEQUESTRECTOMY [None]
